APPROVED DRUG PRODUCT: NITROGLYCERIN
Active Ingredient: NITROGLYCERIN
Strength: 5MG/ML
Dosage Form/Route: INJECTABLE;INJECTION
Application: A072034 | Product #001
Applicant: AMERICAN REGENT INC
Approved: May 24, 1988 | RLD: No | RS: Yes | Type: RX